FAERS Safety Report 11076096 (Version 1)
Quarter: 2015Q2

REPORT INFORMATION
  Report Type: Spontaneous
  Country: IT (occurrence: IT)
  Receive Date: 20150429
  Receipt Date: 20150429
  Transmission Date: 20150821
  Serious: Yes (Hospitalization)
  Sender: FDA-Public Use
  Company Number: PHHY2015IT048505

PATIENT
  Age: 72 Year
  Sex: Male

DRUGS (2)
  1. FLUOROURACILE AHCL [Suspect]
     Active Substance: FLUOROURACIL
     Indication: COLON CANCER
     Dosage: 2040 MG, CYCLIC
     Route: 042
     Dates: start: 20150409
  2. OXALIPLATIN SANDOZ [Suspect]
     Active Substance: OXALIPLATIN
     Indication: COLON CANCER
     Dosage: 145 MG, CYCLIC
     Route: 042
     Dates: start: 20150409, end: 20150409

REACTIONS (3)
  - Asthenia [Recovering/Resolving]
  - Laryngospasm [Recovering/Resolving]
  - Bronchospasm [Recovering/Resolving]

NARRATIVE: CASE EVENT DATE: 20150409
